FAERS Safety Report 9049913 (Version 3)
Quarter: 2013Q2

REPORT INFORMATION
  Report Type: Spontaneous
  Country: DE (occurrence: DE)
  Receive Date: 20130205
  Receipt Date: 20130403
  Transmission Date: 20140414
  Serious: Yes (Other)
  Sender: FDA-Public Use
  Company Number: DE-AMGEN-DEUSP2013007329

PATIENT
  Age: 52 Year
  Sex: Female

DRUGS (2)
  1. ENBREL [Suspect]
     Indication: RHEUMATOID ARTHRITIS
     Dosage: 50 MG, WEEKLY
     Dates: start: 20120102, end: 20130128
  2. ENBREL [Suspect]
     Dosage: 50 MG, QWK
     Dates: start: 201302

REACTIONS (2)
  - Carpal tunnel syndrome [Unknown]
  - Inflammation [Unknown]
